APPROVED DRUG PRODUCT: SUBOXONE
Active Ingredient: BUPRENORPHINE HYDROCHLORIDE; NALOXONE HYDROCHLORIDE
Strength: EQ 12MG BASE;EQ 3MG BASE
Dosage Form/Route: FILM;BUCCAL, SUBLINGUAL
Application: N022410 | Product #004 | TE Code: AB
Applicant: INDIVIOR INC
Approved: Aug 10, 2012 | RLD: Yes | RS: Yes | Type: RX

PATENTS:
Patent 8475832 | Expires: Mar 26, 2030
Patent 9687454 | Expires: Aug 7, 2029
Patent 11135216 | Expires: Aug 7, 2029